FAERS Safety Report 9690136 (Version 1)
Quarter: 2013Q4

REPORT INFORMATION
  Report Type: Spontaneous
  Country: US (occurrence: US)
  Receive Date: 20131115
  Receipt Date: 20131115
  Transmission Date: 20140711
  Serious: No
  Sender: FDA-Public Use
  Company Number: US-PFIZER INC-2013325014

PATIENT
  Sex: Female

DRUGS (1)
  1. LYRICA [Suspect]
     Indication: NEURALGIA
     Dosage: UNK, TAKEN IT TWICE

REACTIONS (4)
  - Tremor [Unknown]
  - Blood glucose increased [Unknown]
  - Dizziness [Unknown]
  - Confusional state [Unknown]
